FAERS Safety Report 8804430 (Version 4)
Quarter: 2013Q4

REPORT INFORMATION
  Report Type: Spontaneous
  Country: TR (occurrence: TR)
  Receive Date: 20120924
  Receipt Date: 20131016
  Transmission Date: 20140711
  Serious: Yes (Hospitalization, Other)
  Sender: FDA-Public Use
  Company Number: TR-AMGEN-TURSP2012020384

PATIENT
  Age: 42 Year
  Sex: Male

DRUGS (6)
  1. ENBREL [Suspect]
     Indication: ANKYLOSING SPONDYLITIS
     Dosage: 25 MG, 2 TIMES/WK
     Route: 058
     Dates: start: 20101211, end: 201206
  2. ENBREL [Suspect]
     Dosage: 50 MG, WEEKLY
     Route: 058
     Dates: start: 201206, end: 201208
  3. ENBREL [Suspect]
     Dosage: 50 MG, WEEKLY
     Route: 058
     Dates: start: 2012, end: 20130203
  4. ENBREL [Suspect]
     Dosage: 50 MG, WEEKLY
     Route: 058
     Dates: start: 2013, end: 201309
  5. ENBREL [Suspect]
     Dosage: 50 MG, WEEKLY
     Route: 058
     Dates: start: 201309
  6. ZEFFIX [Concomitant]
     Indication: HEPATITIS B
     Dosage: 100 MG, 1X/DAY
     Route: 048

REACTIONS (4)
  - Tendon rupture [Recovered/Resolved]
  - Skin wound [Recovered/Resolved with Sequelae]
  - Wound infection [Not Recovered/Not Resolved]
  - Influenza [Recovered/Resolved]
